FAERS Safety Report 5026207-0 (Version None)
Quarter: 2006Q2

REPORT INFORMATION
  Report Type: 
  Country: None (occurrence: None)
  Receive Date: 20060608
  Receipt Date: 20060602
  Transmission Date: 20061013
  Serious: Yes (Congenital Anomaly, Other)
  Sender: FDA-Public Use
  Company Number: 200612279GDS

PATIENT
  Age: 20 Year
  Sex: Female

DRUGS (1)
  1. ASPIRIN [Suspect]
     Indication: HEADACHE
     Dosage: UNK
     Route: 065

REACTIONS (7)
  - CONGENITAL NOSE MALFORMATION [None]
  - CYCLOPIA [None]
  - DRUG EXPOSURE DURING PREGNANCY [None]
  - HOLOPROSENCEPHALY [None]
  - LABOUR INDUCTION [None]
  - STILLBIRTH [None]
  - ULTRASOUND ANTENATAL SCREEN ABNORMAL [None]
